FAERS Safety Report 23195740 (Version 1)
Quarter: 2023Q4

REPORT INFORMATION
  Report Type: Spontaneous
  Country: BR (occurrence: BR)
  Receive Date: 20231117
  Receipt Date: 20231117
  Transmission Date: 20240109
  Serious: Yes (Other)
  Sender: FDA-Public Use
  Company Number: BR-002147023-NVSC2023BR240892

PATIENT
  Sex: Female

DRUGS (4)
  1. ZOLEDRONIC ACID [Suspect]
     Active Substance: ZOLEDRONIC ACID
     Indication: Breast cancer female
     Dosage: UNK
     Route: 065
  2. ANASTROZOLE [Concomitant]
     Active Substance: ANASTROZOLE
     Indication: Breast cancer female
     Dosage: UNK
     Route: 065
     Dates: start: 2021
  3. FASLODEX [Concomitant]
     Active Substance: FULVESTRANT
     Indication: Breast cancer female
     Dosage: UNK
     Route: 065
  4. TAMOXIFEN [Concomitant]
     Active Substance: TAMOXIFEN
     Indication: Breast cancer female
     Dosage: UNK
     Route: 065
     Dates: start: 2018

REACTIONS (13)
  - Bone disorder [Unknown]
  - Lung disorder [Unknown]
  - Benign bone neoplasm [Unknown]
  - Tumour pain [Unknown]
  - Lymphoedema [Unknown]
  - Hypermetabolism [Unknown]
  - Bone lesion [Unknown]
  - Pleural effusion [Unknown]
  - Head injury [Unknown]
  - Nodule [Unknown]
  - Osteolysis [Unknown]
  - Therapy partial responder [Unknown]
  - Bone pain [Unknown]

NARRATIVE: CASE EVENT DATE: 20200101
